FAERS Safety Report 6235456-5 (Version None)
Quarter: 2009Q2

REPORT INFORMATION
  Report Type: 
  Country: None (occurrence: None)
  Receive Date: 20090615
  Receipt Date: 20090602
  Transmission Date: 20091009
  Serious: Yes (Hospitalization)
  Sender: FDA-Public Use
  Company Number: 1000006766

PATIENT
  Age: 85 Year
  Sex: Female

DRUGS (10)
  1. ESCITALOPRAM [Suspect]
     Dosage: 10 MG (10 MG, 1 IN 1 D), ORAL
     Route: 048
     Dates: end: 20090507
  2. GALANTAMINE HYDROBROMI [Suspect]
     Dosage: 24 MG (24 MG, 1 IN 1 D)
     Dates: end: 20090507
  3. COAPROVEL [Concomitant]
  4. FLUINDONE [Concomitant]
  5. PANTOPRAZOLE SODIUM [Concomitant]
  6. LEVOTHYROX [Concomitant]
  7. FLUTICASONE [Concomitant]
  8. BROMAZEPAM [Concomitant]
  9. IBANDRONIC ACID [Concomitant]
  10. PARACETAMOL [Concomitant]

REACTIONS (12)
  - ATRIAL FIBRILLATION [None]
  - BRADYCARDIA [None]
  - CONDUCTION DISORDER [None]
  - DRUG INTERACTION [None]
  - ELECTROCARDIOGRAM QT PROLONGED [None]
  - HYPERTENSION [None]
  - LOSS OF CONSCIOUSNESS [None]
  - MALAISE [None]
  - MOTOR DYSFUNCTION [None]
  - NERVOUS SYSTEM DISORDER [None]
  - TORSADE DE POINTES [None]
  - VENTRICULAR EXTRASYSTOLES [None]
